FAERS Safety Report 7324198-0 (Version None)
Quarter: 2011Q1

REPORT INFORMATION
  Report Type: 
  Country: None (occurrence: None)
  Receive Date: 20110301
  Receipt Date: 20110222
  Transmission Date: 20110831
  Serious: Yes (Other)
  Sender: FDA-Public Use
  Company Number: NL-PFIZER INC-2011031814

PATIENT
  Age: 69 Year
  Sex: Male
  Weight: 78 kg

DRUGS (4)
  1. ASCAL [Concomitant]
     Dosage: 100 MG, UNK
  2. LYRICA [Suspect]
     Indication: NEURALGIA
     Dosage: 100 MG, UNK
  3. PROMOCARD [Concomitant]
     Dosage: 30 MG, DAILY
  4. LYRICA [Suspect]
     Dosage: 150 MG, UNK
     Dates: start: 20090101

REACTIONS (1)
  - PRINZMETAL ANGINA [None]
